FAERS Safety Report 9636444 (Version 1)
Quarter: 2013Q4

REPORT INFORMATION
  Report Type: Spontaneous
  Country: US (occurrence: US)
  Receive Date: 20131021
  Receipt Date: 20131021
  Transmission Date: 20140711
  Serious: Yes (Hospitalization)
  Sender: FDA-Public Use
  Company Number: US-B.I. PHARMACEUTICALS,INC./RIDGEFIELD-2013-BI-32663BP

PATIENT
  Age: 64 Year
  Sex: Female
  Weight: 59 kg

DRUGS (18)
  1. SPIRIVA [Suspect]
     Indication: CHRONIC OBSTRUCTIVE PULMONARY DISEASE
     Dosage: 18 MCG
     Route: 055
     Dates: start: 2008
  2. BACLOFEN [Concomitant]
     Indication: MUSCLE SPASMS
     Dosage: 30 MG
     Route: 048
     Dates: start: 2008
  3. LISINOPRIL [Concomitant]
     Dosage: 10 MG
     Route: 048
     Dates: start: 201310
  4. ALBUTEROL MDI [Concomitant]
     Indication: CHRONIC OBSTRUCTIVE PULMONARY DISEASE
     Route: 055
     Dates: start: 2012
  5. SYMBICORT [Concomitant]
     Indication: CHRONIC OBSTRUCTIVE PULMONARY DISEASE
     Dosage: 4 PUF
     Route: 055
     Dates: start: 2013
  6. PANTOPRAZOLE [Concomitant]
     Indication: GASTROOESOPHAGEAL REFLUX DISEASE
     Dosage: 40 MG
     Route: 048
     Dates: start: 2013
  7. CARVEDILOL [Concomitant]
     Dosage: 3.125 MG
     Route: 048
     Dates: start: 201310
  8. CITALOPRAM [Concomitant]
     Dosage: 20 MG
     Route: 048
     Dates: start: 201310
  9. CLOPIDOGREL [Concomitant]
     Indication: BLOOD VISCOSITY INCREASED
     Dosage: 75 MG
     Route: 048
     Dates: start: 2009
  10. POTASSIUM [Concomitant]
     Indication: MINERAL SUPPLEMENTATION
     Dosage: 10 MEQ
     Dates: start: 2003
  11. AMITRIPTYLINE [Concomitant]
     Indication: TRANSIENT ISCHAEMIC ATTACK
     Dosage: 25 MG
     Route: 048
     Dates: start: 2009
  12. ACETAMINOPHEN [Concomitant]
     Indication: BACK PAIN
     Route: 048
     Dates: start: 1998
  13. ASPIRIN [Concomitant]
     Indication: CARDIAC DISORDER
     Dosage: 325 MG
     Route: 048
     Dates: start: 2006
  14. NEURONTIN [Concomitant]
     Indication: NEUROPATHY PERIPHERAL
     Dosage: 1800 MG
     Route: 048
     Dates: start: 2006
  15. LEVOTHYROXINE [Concomitant]
     Indication: HYPOTHYROIDISM
     Dosage: 75 MCG
     Route: 048
     Dates: start: 2008
  16. LORAZEPAM [Concomitant]
     Indication: PANIC ATTACK
     Dosage: 2 MG
     Route: 048
     Dates: start: 201310
  17. QUETIAPINE [Concomitant]
     Indication: INSOMNIA
     Dosage: 100 MG
     Route: 048
     Dates: start: 2008
  18. FUROSEMIDE [Concomitant]
     Indication: FLUID RETENTION
     Dosage: 40 MG
     Route: 048
     Dates: start: 2003

REACTIONS (4)
  - Myocardial infarction [Recovered/Resolved]
  - Dyspnoea [Recovered/Resolved]
  - Abnormal loss of weight [Unknown]
  - Tremor [Not Recovered/Not Resolved]
